FAERS Safety Report 22221251 (Version 1)
Quarter: 2023Q2

REPORT INFORMATION
  Report Type: Spontaneous
  Country: DE (occurrence: DE)
  Receive Date: 20230418
  Receipt Date: 20230418
  Transmission Date: 20230721
  Serious: Yes (Other)
  Sender: FDA-Public Use
  Company Number: DE-BIOGEN-2023BI01198129

PATIENT
  Age: 36 Year
  Sex: Female
  Weight: 48 kg

DRUGS (9)
  1. OXYBUTYNIN [Suspect]
     Active Substance: OXYBUTYNIN
     Indication: Urinary incontinence
     Dosage: 39 [MG/D ]/ DAILY 3X13 MG 3 SEPARATED DOSES
     Route: 043
     Dates: start: 20210914, end: 20220602
  2. AMANTADINE [Suspect]
     Active Substance: AMANTADINE
     Indication: Multiple sclerosis
     Dosage: 150 [MG/D ]/ INITALLY 150 MG/D, GW 7 REDUCED TO 100 MG/D
     Route: 048
     Dates: start: 20210914, end: 20211103
  3. TYSABRI [Suspect]
     Active Substance: NATALIZUMAB
     Indication: Multiple sclerosis
     Dosage: 300 [MG/4WK ]
     Route: 058
     Dates: start: 20210914, end: 20220505
  4. ARIXTRA [Concomitant]
     Active Substance: FONDAPARINUX SODIUM
     Indication: Factor V deficiency
     Dosage: 2.5 [MG/D ]/ FRAGMIN SINCE GW 10, AFTER SOME WEEKS CHANGE TO ARIXTRA, UNKNOWN WHEN
     Route: 058
  5. COMIRNATY [Concomitant]
     Active Substance: TOZINAMERAN
     Indication: COVID-19 immunisation
     Dosage: FIRST VACCINATION
     Route: 030
     Dates: start: 20211006, end: 20211006
  6. COMIRNATY [Concomitant]
     Active Substance: TOZINAMERAN
     Dosage: SECOND VACCINATION, DATE UNKNOWN
     Route: 030
  7. DALTEPARIN SODIUM [Concomitant]
     Active Substance: DALTEPARIN SODIUM
     Indication: Factor V deficiency
     Dosage: 2500 [IE/D ]/ START GW 10, AFTER SOME WEEKS CHANGE TO ARIXTRA, UNKNOWN WHEN
     Route: 058
  8. ACETAMINOPHEN [Concomitant]
     Active Substance: ACETAMINOPHEN
     Indication: Headache
     Dosage: 500 MG/D [BEI BEDARF ]/ 500 MG, AS NEEDED, RARELY USED
     Route: 048
     Dates: start: 20210914, end: 20220602
  9. FOSFOMYCIN [Concomitant]
     Active Substance: FOSFOMYCIN
     Indication: Urinary tract infection
     Dosage: 3000 [MG/D ]/ SINGLE DOSE
     Route: 048
     Dates: start: 20211221, end: 20211221

REACTIONS (4)
  - Maternal exposure during pregnancy [Recovered/Resolved]
  - Premature rupture of membranes [Recovered/Resolved]
  - Gestational diabetes [Unknown]
  - Foetal heart rate deceleration abnormality [Unknown]

NARRATIVE: CASE EVENT DATE: 20210914
